FAERS Safety Report 9356116 (Version 1)
Quarter: 2013Q2

REPORT INFORMATION
  Report Type: Spontaneous
  Country: US (occurrence: US)
  Receive Date: 20130619
  Receipt Date: 20130619
  Transmission Date: 20140414
  Serious: Yes (Other)
  Sender: FDA-Public Use
  Company Number: US-INCYTE CORPORATION-2013IN000865

PATIENT
  Sex: Male

DRUGS (2)
  1. JAKAFI [Suspect]
     Indication: POLYCYTHAEMIA VERA
     Dosage: 20 MG, BID
     Route: 048
     Dates: start: 201302, end: 2013
  2. JAKAFI [Suspect]
     Dosage: 15 MG, BID
     Route: 048
     Dates: start: 2013, end: 201304

REACTIONS (6)
  - Malignant melanoma [Unknown]
  - Pain in extremity [Unknown]
  - Arthralgia [Unknown]
  - Oral pruritus [Unknown]
  - Rhinorrhoea [Unknown]
  - Oropharyngeal pain [Unknown]
